FAERS Safety Report 10269153 (Version 1)
Quarter: 2014Q2

REPORT INFORMATION
  Report Type: Spontaneous
  Country: US (occurrence: US)
  Receive Date: 20140630
  Receipt Date: 20140630
  Transmission Date: 20141212
  Serious: No
  Sender: FDA-Public Use
  Company Number: US-SA-2013SA135219

PATIENT
  Age: 52 Year
  Sex: Female
  Weight: 48.5 kg

DRUGS (3)
  1. HECTOROL [Suspect]
     Indication: PRODUCT USED FOR UNKNOWN INDICATION
     Dosage: ROUTE: IVP
     Route: 042
     Dates: start: 20131217, end: 20131217
  2. HEPARIN [Concomitant]
     Indication: ANTICOAGULANT THERAPY
     Dosage: ROUTE: IVP DOSE:1000 UNIT(S)
     Route: 042
     Dates: start: 20130801
  3. EPOGEN [Concomitant]
     Indication: ANAEMIA
     Dosage: ROUTE: IVP DOSE:3200 UNIT(S)
     Route: 042
     Dates: start: 20131208, end: 20140113

REACTIONS (6)
  - Feeling hot [Recovered/Resolved]
  - Back pain [Recovered/Resolved]
  - Intra-abdominal pressure increased [Recovered/Resolved]
  - Malaise [Recovered/Resolved]
  - Dry mouth [Recovered/Resolved]
  - Dyspnoea [Recovered/Resolved]
